FAERS Safety Report 13886226 (Version 2)
Quarter: 2017Q3

REPORT INFORMATION
  Report Type: Spontaneous
  Country: US (occurrence: US)
  Receive Date: 20170821
  Receipt Date: 20170823
  Transmission Date: 20171127
  Serious: Yes (Other)
  Sender: FDA-Public Use
  Company Number: US-JNJFOC-20170815583

PATIENT
  Sex: Male

DRUGS (2)
  1. INVEGA SUSTENNA [Suspect]
     Active Substance: PALIPERIDONE PALMITATE
     Indication: PRODUCT USED FOR UNKNOWN INDICATION
     Route: 030
     Dates: start: 201701
  2. INVEGA SUSTENNA [Suspect]
     Active Substance: PALIPERIDONE PALMITATE
     Indication: PRODUCT USED FOR UNKNOWN INDICATION
     Route: 030

REACTIONS (12)
  - Agitation [Unknown]
  - Pleural effusion [Unknown]
  - Feeling abnormal [Unknown]
  - Confusional state [Unknown]
  - Clostridium difficile infection [Unknown]
  - Weight decreased [Unknown]
  - Speech disorder [Unknown]
  - Contusion [Unknown]
  - Aphasia [Unknown]
  - Cast application [Unknown]
  - Eye contusion [Unknown]
  - Dysphagia [Unknown]

NARRATIVE: CASE EVENT DATE: 2017
